FAERS Safety Report 9682671 (Version 2)
Quarter: 2013Q4

REPORT INFORMATION
  Report Type: Spontaneous
  Country: US (occurrence: US)
  Receive Date: 20131018
  Receipt Date: 20131026
  Transmission Date: 20140711
  Serious: Yes (Other)
  Sender: FDA-Public Use
  Company Number: US-DRREDDYS-USA/USA/13/0034964

PATIENT
  Age: 32 Year
  Sex: Female
  Weight: 72.64 kg

DRUGS (1)
  1. ZENATANE [Suspect]
     Indication: ACNE
     Route: 048
     Dates: start: 20130919, end: 201309

REACTIONS (4)
  - Depression [Recovered/Resolved]
  - Headache [Not Recovered/Not Resolved]
  - Nausea [Recovered/Resolved]
  - Feeling abnormal [Unknown]
